FAERS Safety Report 24794034 (Version 1)
Quarter: 2024Q4

REPORT INFORMATION
  Report Type: Spontaneous
  Country: US (occurrence: None)
  Receive Date: 20241230
  Receipt Date: 20241230
  Transmission Date: 20250115
  Serious: No
  Sender: Public
  Company Number: None

PATIENT
  Age: 64 Year
  Sex: Female
  Weight: 56.25 kg

DRUGS (1)
  1. GAMMAGARD [Suspect]
     Active Substance: HUMAN IMMUNOGLOBULIN G
     Indication: Myasthenia gravis
     Dosage: OTHER FREQUENCY : Q6 WEEKS;?
     Route: 041
     Dates: start: 20241230, end: 20241230

REACTIONS (4)
  - Dizziness [None]
  - Flushing [None]
  - Nervousness [None]
  - Infusion related reaction [None]

NARRATIVE: CASE EVENT DATE: 20241230
